FAERS Safety Report 17517068 (Version 1)
Quarter: 2020Q1

REPORT INFORMATION
  Report Type: Spontaneous
  Country: US (occurrence: US)
  Receive Date: 20200307
  Receipt Date: 20200307
  Transmission Date: 20200409
  Serious: Yes (Disabling)
  Sender: FDA-Public Use
  Company Number: None

PATIENT
  Age: 88 Year
  Sex: Female
  Weight: 53.55 kg

DRUGS (9)
  1. CLONIINE 0.1 [Concomitant]
  2. COZAAR [Concomitant]
     Active Substance: LOSARTAN POTASSIUM
  3. ELIQUIS [Concomitant]
     Active Substance: APIXABAN
  4. FIRDAPSE [Concomitant]
     Active Substance: AMIFAMPRIDINE
  5. CLONIDINE PATCH [Concomitant]
     Active Substance: CLONIDINE
  6. VITAMIN D [Concomitant]
     Active Substance: VITAMIN D NOS
  7. FIRDAPSE [Suspect]
     Active Substance: AMIFAMPRIDINE
     Indication: MYASTHENIC SYNDROME
     Dosage: ?          QUANTITY:1.5 TABLET(S);?
     Route: 048
  8. TYLENOL [Concomitant]
     Active Substance: ACETAMINOPHEN
  9. HYDROCHLORIAZIDE [Concomitant]

REACTIONS (5)
  - Dyspepsia [None]
  - Impaired quality of life [None]
  - Condition aggravated [None]
  - Therapeutic response decreased [None]
  - Burn oesophageal [None]

NARRATIVE: CASE EVENT DATE: 20200102
